FAERS Safety Report 6800942-3 (Version None)
Quarter: 2010Q2

REPORT INFORMATION
  Report Type: 
  Country: None (occurrence: None)
  Receive Date: 20100629
  Receipt Date: 20100621
  Transmission Date: 20101027
  Serious: Yes (Other)
  Sender: FDA-Public Use
  Company Number: PHHY2010BR13543

PATIENT
  Age: 30 Year
  Sex: Female

DRUGS (3)
  1. TEGRETOL-XR [Suspect]
     Indication: SCHIZOPHRENIA
     Dosage: 01 DF,DAILY
     Route: 048
  2. TEGRETOL-XR [Suspect]
     Dosage: 01 DF, DAILY
     Route: 048
  3. MELLARIL [Suspect]
     Dosage: 1 DF, BID

REACTIONS (10)
  - ACNE [None]
  - AMENORRHOEA [None]
  - BREAST DISCHARGE [None]
  - BREAST SWELLING [None]
  - CRYING [None]
  - DERMATITIS ALLERGIC [None]
  - FEELING ABNORMAL [None]
  - PRURITUS [None]
  - WEIGHT INCREASED [None]
  - WOUND HAEMORRHAGE [None]
